FAERS Safety Report 7030009-3 (Version None)
Quarter: 2010Q4

REPORT INFORMATION
  Report Type: 
  Country: None (occurrence: None)
  Receive Date: 20101006
  Receipt Date: 20100930
  Transmission Date: 20110411
  Serious: Yes (Hospitalization)
  Sender: FDA-Public Use
  Company Number: PHHY2010JP59924

PATIENT
  Age: 77 Year
  Sex: Male

DRUGS (3)
  1. COMTAN [Suspect]
     Indication: DRUG EFFECT DECREASED
     Dosage: 500 MG, QD
     Route: 048
  2. MENESIT [Concomitant]
  3. SELEGILINE HYDROCHLORIDE [Concomitant]

REACTIONS (3)
  - DYSPHAGIA [None]
  - INJURY [None]
  - ROAD TRAFFIC ACCIDENT [None]
